FAERS Safety Report 10152126 (Version 1)
Quarter: 2014Q2

REPORT INFORMATION
  Report Type: Spontaneous
  Country: IT (occurrence: IT)
  Receive Date: 20140505
  Receipt Date: 20140505
  Transmission Date: 20141212
  Serious: Yes (Hospitalization, Other)
  Sender: FDA-Public Use
  Company Number: IT-ROXANE LABORATORIES, INC.-2014-RO-00674RO

PATIENT
  Age: 62 Year
  Sex: Female

DRUGS (3)
  1. DISULFIRAM [Suspect]
     Indication: ALCOHOLISM
     Dosage: 400 MG
     Route: 065
  2. VALPROATE [Suspect]
     Indication: BIPOLAR DISORDER
     Dosage: 1000 MG
     Route: 065
  3. GAMMA-HYDROXYBUTYRIC ACID [Suspect]
     Indication: ALCOHOLISM
     Dosage: 3500 MG
     Route: 065

REACTIONS (3)
  - Hypomania [Recovered/Resolved]
  - Epilepsy [Recovered/Resolved]
  - Psychotic disorder [Recovered/Resolved]
